FAERS Safety Report 9078848 (Version 1)
Quarter: 2013Q1

REPORT INFORMATION
  Report Type: Spontaneous
  Country: DK (occurrence: DK)
  Receive Date: 20130215
  Receipt Date: 20130215
  Transmission Date: 20140127
  Serious: Yes (Hospitalization)
  Sender: FDA-Public Use
  Company Number: DK-ELI_LILLY_AND_COMPANY-DK201302000989

PATIENT
  Sex: Male

DRUGS (5)
  1. ALIMTA [Suspect]
     Indication: NON-SMALL CELL LUNG CANCER
     Dosage: UNK
     Dates: start: 20130103
  2. ALIMTA [Suspect]
     Dosage: UNK
     Dates: start: 20130124
  3. PREDNISOLONE [Concomitant]
     Dosage: 25 MG, QD
  4. PANODIL [Concomitant]
     Dosage: 2 DF, PRN
  5. KODEIN [Concomitant]
     Dosage: UNK UNK, PRN

REACTIONS (6)
  - C-reactive protein increased [Recovering/Resolving]
  - Platelet count increased [Recovered/Resolved]
  - Blood lactate dehydrogenase increased [Recovering/Resolving]
  - Pyrexia [Recovered/Resolved]
  - Neutrophil count decreased [Recovering/Resolving]
  - White blood cell count decreased [Recovering/Resolving]
